FAERS Safety Report 5434775-X (Version None)
Quarter: 2007Q3

REPORT INFORMATION
  Report Type: 
  Country: None (occurrence: None)
  Receive Date: 20070831
  Receipt Date: 20070806
  Transmission Date: 20080115
  Serious: No
  Sender: FDA-Public Use
  Company Number: A0668019A

PATIENT
  Age: 38 Year
  Sex: Male

DRUGS (1)
  1. ALLI [Suspect]
     Dates: end: 20070802

REACTIONS (1)
  - ALOPECIA [None]
